FAERS Safety Report 7028301-1 (Version None)
Quarter: 2010Q4

REPORT INFORMATION
  Report Type: 
  Country: None (occurrence: None)
  Receive Date: 20101005
  Receipt Date: 20100928
  Transmission Date: 20110411
  Serious: Yes (Other)
  Sender: FDA-Public Use
  Company Number: JP-JNJFOC-20100805315

PATIENT
  Sex: Female
  Weight: 59 kg

DRUGS (13)
  1. DOXIL [Suspect]
     Indication: OVARIAN CANCER RECURRENT
     Dosage: COURSE 1
     Route: 042
  2. DOXIL [Suspect]
     Dosage: COURSE 2
     Route: 042
  3. CHLOR-TRIMETON [Concomitant]
     Indication: PROPHYLAXIS
     Route: 042
  4. DECADRON [Concomitant]
     Indication: PROPHYLAXIS
     Route: 042
  5. PYDOXAL [Concomitant]
     Indication: PALMAR-PLANTAR ERYTHRODYSAESTHESIA SYNDROME
     Route: 048
  6. PYDOXAL [Concomitant]
     Route: 048
  7. PYDOXAL [Concomitant]
     Indication: PROPHYLAXIS
     Route: 048
  8. PYDOXAL [Concomitant]
     Route: 048
  9. AZUNOL [Concomitant]
     Indication: PROPHYLAXIS
     Route: 049
  10. AZUNOL [Concomitant]
     Route: 049
  11. NAVOBAN [Concomitant]
     Indication: PROPHYLAXIS
     Route: 048
  12. GASTER D [Concomitant]
     Indication: ABDOMINAL PAIN UPPER
     Route: 048
  13. UREPEARL [Concomitant]
     Indication: PALMAR-PLANTAR ERYTHRODYSAESTHESIA SYNDROME
     Route: 061

REACTIONS (2)
  - GASTROINTESTINAL DISORDER [None]
  - WHITE BLOOD CELL COUNT DECREASED [None]
